FAERS Safety Report 8149764 (Version 2)
Quarter: 2013Q1

REPORT INFORMATION
  Report Type: Spontaneous
  Country: US (occurrence: US)
  Receive Date: 20110922
  Receipt Date: 20130321
  Transmission Date: 20140127
  Serious: Yes (Hospitalization)
  Sender: FDA-Public Use
  Company Number: US-ASTRAZENECA-2011SE29091

PATIENT
  Age: 691 Month
  Sex: Male
  Weight: 76.2 kg

DRUGS (23)
  1. SEROQUEL [Suspect]
     Indication: SCHIZOPHRENIA
     Route: 048
     Dates: start: 2007, end: 2012
  2. SEROQUEL [Suspect]
     Indication: BIPOLAR DISORDER
     Route: 048
     Dates: start: 2007, end: 2012
  3. SEROQUEL [Suspect]
     Indication: SCHIZOPHRENIA
     Route: 048
     Dates: start: 2007, end: 2012
  4. SEROQUEL [Suspect]
     Indication: BIPOLAR DISORDER
     Route: 048
     Dates: start: 2007, end: 2012
  5. SEROQUEL [Suspect]
     Indication: SCHIZOPHRENIA
     Dosage: GENERIC, 800 MG AT NIGHT
     Route: 048
     Dates: start: 2012, end: 201204
  6. SEROQUEL [Suspect]
     Indication: BIPOLAR DISORDER
     Dosage: GENERIC, 800 MG AT NIGHT
     Route: 048
     Dates: start: 2012, end: 201204
  7. SEROQUEL [Suspect]
     Indication: SCHIZOPHRENIA
     Dosage: GENERIC, 200 MG EVERY MORNING
     Route: 048
     Dates: start: 2012, end: 201204
  8. SEROQUEL [Suspect]
     Indication: BIPOLAR DISORDER
     Dosage: GENERIC, 200 MG EVERY MORNING
     Route: 048
     Dates: start: 2012, end: 201204
  9. SEROQUEL [Suspect]
     Indication: SCHIZOPHRENIA
     Route: 048
     Dates: start: 201211
  10. SEROQUEL [Suspect]
     Indication: BIPOLAR DISORDER
     Route: 048
     Dates: start: 201211
  11. SEROQUEL [Suspect]
     Indication: SCHIZOPHRENIA
     Route: 048
  12. SEROQUEL [Suspect]
     Indication: BIPOLAR DISORDER
     Route: 048
  13. SEROQUEL [Suspect]
     Indication: SCHIZOPHRENIA
     Dosage: 200 MG AM
     Route: 048
  14. SEROQUEL [Suspect]
     Indication: BIPOLAR DISORDER
     Dosage: 200 MG AM
     Route: 048
  15. SEROQUEL [Suspect]
     Indication: SCHIZOPHRENIA
     Route: 048
  16. SEROQUEL [Suspect]
     Indication: BIPOLAR DISORDER
     Route: 048
  17. ANTIPSYCHOTIC [Concomitant]
  18. DEPAKOTE [Concomitant]
     Indication: BIPOLAR DISORDER
     Dates: start: 2005, end: 20130318
  19. DEPAKOTE [Concomitant]
     Indication: BIPOLAR DISORDER
     Dates: start: 20130318
  20. VALPROIC ACID [Concomitant]
     Dates: start: 2003, end: 2005
  21. LUNESTA OTC [Concomitant]
     Indication: SLEEP DISORDER
  22. OLANZEPINE [Concomitant]
  23. MULTIVITAMIN [Concomitant]
     Indication: PROPHYLAXIS
     Dosage: UNKNOWN DOSE, DAILY
     Dates: start: 20121219

REACTIONS (8)
  - Mania [Unknown]
  - Drug dose omission [Unknown]
  - Insomnia [Unknown]
  - Paranoia [Unknown]
  - Derealisation [Unknown]
  - Psychiatric decompensation [Unknown]
  - Off label use [Unknown]
  - Psychotic disorder [Unknown]
